FAERS Safety Report 22088877 (Version 1)
Quarter: 2023Q1

REPORT INFORMATION
  Report Type: Spontaneous
  Country: IE (occurrence: IE)
  Receive Date: 20230313
  Receipt Date: 20230313
  Transmission Date: 20230418
  Serious: Yes (Death, Hospitalization)
  Sender: FDA-Public Use
  Company Number: IE-JNJFOC-20230110397

PATIENT
  Age: 83 Year
  Sex: Male

DRUGS (10)
  1. ERLEADA [Suspect]
     Active Substance: APALUTAMIDE
     Indication: Prostate cancer
     Route: 048
  2. SERTRALINE [Concomitant]
     Active Substance: SERTRALINE HYDROCHLORIDE
  3. PREGABALIN [Concomitant]
     Active Substance: PREGABALIN
  4. IRON [Concomitant]
     Active Substance: IRON
  5. TEMAZEPAM [Concomitant]
     Active Substance: TEMAZEPAM
  6. SENNA LEAF [Concomitant]
     Active Substance: SENNA LEAF
  7. MST [MAGNESIUM SALICYLATE] [Concomitant]
  8. BIOXTRA [Concomitant]
  9. FIRMAGON [Concomitant]
     Active Substance: DEGARELIX ACETATE
  10. ACETAMINOPHEN [Concomitant]
     Active Substance: ACETAMINOPHEN
     Dosage: PRN

REACTIONS (3)
  - Death [Fatal]
  - Toxic epidermal necrolysis [Recovering/Resolving]
  - General physical health deterioration [Unknown]
